FAERS Safety Report 23582746 (Version 1)
Quarter: 2024Q1

REPORT INFORMATION
  Report Type: Spontaneous
  Country: US (occurrence: US)
  Receive Date: 20240301
  Receipt Date: 20240301
  Transmission Date: 20240410
  Serious: Yes (Other)
  Sender: FDA-Public Use
  Company Number: US-BRISTOL-MYERS SQUIBB COMPANY-2024-029363

PATIENT
  Age: 60 Year
  Sex: Male

DRUGS (1)
  1. LENALIDOMIDE [Suspect]
     Active Substance: LENALIDOMIDE
     Indication: Product used for unknown indication
     Dosage: 2 CAPSULES DAILY X 21 DAYS
     Route: 048
     Dates: start: 20230911

REACTIONS (4)
  - Neuropathy peripheral [Recovering/Resolving]
  - Pain [Recovering/Resolving]
  - Mental impairment [Recovering/Resolving]
  - Asthenia [Recovering/Resolving]
